FAERS Safety Report 12300924 (Version 1)
Quarter: 2016Q2

REPORT INFORMATION
  Report Type: Spontaneous
  Country: US (occurrence: US)
  Receive Date: 20160425
  Receipt Date: 20160425
  Transmission Date: 20160815
  Serious: No
  Sender: FDA-Public Use
  Company Number: US-BAYER-2016-069969

PATIENT
  Age: 70 Year
  Sex: Female
  Weight: 58.95 kg

DRUGS (3)
  1. LISINOPRIL. [Concomitant]
     Active Substance: LISINOPRIL
  2. MIRALAX [Suspect]
     Active Substance: POLYETHYLENE GLYCOL 3350
     Indication: CONSTIPATION
     Dosage: 1 DF, QD
     Route: 048
  3. NOVO-ALENDRONATE [Concomitant]
     Active Substance: ALENDRONIC ACID

REACTIONS (6)
  - Frequent bowel movements [None]
  - Feeling abnormal [None]
  - Circumstance or information capable of leading to medication error [None]
  - Abdominal pain upper [None]
  - Product use issue [None]
  - Diarrhoea [None]
